FAERS Safety Report 5457884-8 (Version None)
Quarter: 2007Q3

REPORT INFORMATION
  Report Type: 
  Country: None (occurrence: None)
  Receive Date: 20070917
  Receipt Date: 20070910
  Transmission Date: 20080115
  Serious: Yes (Hospitalization)
  Sender: FDA-Public Use
  Company Number: 2007SP018085

PATIENT
  Age: 57 Year
  Sex: Female

DRUGS (12)
  1. TEMODAR [Suspect]
     Indication: GLIOBLASTOMA MULTIFORME
     Dosage: 150 MG/M2; ; PO
     Route: 048
     Dates: start: 20070802, end: 20070806
  2. IRINOTECAN HCL [Suspect]
     Indication: GLIOBLASTOMA MULTIFORME
     Dosage: 300 MG/M2; ; IV, 300 MG/M2; ; IV, 300 MG/M2; ; IV
     Route: 042
     Dates: start: 20070802
  3. IRINOTECAN HCL [Suspect]
     Indication: GLIOBLASTOMA MULTIFORME
     Dosage: 300 MG/M2; ; IV, 300 MG/M2; ; IV, 300 MG/M2; ; IV
     Route: 042
     Dates: start: 20070813
  4. IRINOTECAN HCL [Suspect]
     Indication: GLIOBLASTOMA MULTIFORME
     Dosage: 300 MG/M2; ; IV, 300 MG/M2; ; IV, 300 MG/M2; ; IV
     Route: 042
     Dates: start: 20070827
  5. PROTONIX [Concomitant]
  6. KEPPRA [Concomitant]
  7. DEXAMETHASONE 0.5MG TAB [Concomitant]
  8. PHENOBARBITAL TAB [Concomitant]
  9. DECADRON [Concomitant]
  10. TYLENOL (CAPLET) [Concomitant]
  11. ATIVAN [Concomitant]
  12. TYLENOL [Concomitant]

REACTIONS (1)
  - PNEUMONIA [None]
